FAERS Safety Report 9875201 (Version 1)
Quarter: 2014Q1

REPORT INFORMATION
  Report Type: Spontaneous
  Country: US (occurrence: None)
  Receive Date: 20140205
  Receipt Date: 20140205
  Transmission Date: 20141002
  Serious: Yes (Other)
  Sender: FDA-Public Use
  Company Number: None

PATIENT
  Age: 5 Year
  Sex: Male
  Weight: 18.14 kg

DRUGS (2)
  1. OMNICEF [Suspect]
     Indication: SINUSITIS
     Route: 048
  2. OMNICEF [Suspect]
     Indication: EAR INFECTION
     Route: 048

REACTIONS (4)
  - Palpitations [None]
  - Palpitations [None]
  - Tachycardia [None]
  - Arrhythmia [None]
